FAERS Safety Report 24575477 (Version 2)
Quarter: 2024Q4

REPORT INFORMATION
  Report Type: Spontaneous
  Country: IL (occurrence: IL)
  Receive Date: 20241104
  Receipt Date: 20241209
  Transmission Date: 20250114
  Serious: No
  Sender: BLUEPRINT MEDICINES
  Company Number: IL-Neopharm Limited-SP-IL-2024-002231

PATIENT
  Age: 58 Year
  Sex: Male

DRUGS (3)
  1. AYVAKIT [Suspect]
     Active Substance: AVAPRITINIB
     Indication: Advanced systemic mastocytosis
     Route: 065
     Dates: start: 202407, end: 2024
  2. AYVAKIT [Suspect]
     Active Substance: AVAPRITINIB
     Route: 065
     Dates: start: 2024, end: 2024
  3. AYVAKIT [Suspect]
     Active Substance: AVAPRITINIB
     Route: 065
     Dates: start: 2024

REACTIONS (2)
  - Platelet count decreased [Recovering/Resolving]
  - Periorbital swelling [Recovering/Resolving]

NARRATIVE: CASE EVENT DATE: 20240901
